FAERS Safety Report 12383578 (Version 6)
Quarter: 2018Q2

REPORT INFORMATION
  Report Type: Report from Study
  Country: CA (occurrence: CA)
  Receive Date: 20160518
  Receipt Date: 20180402
  Transmission Date: 20180711
  Serious: Yes (Other)
  Sender: FDA-Public Use
  Company Number: CA-UCBSA-2016018018

PATIENT
  Age: 62 Year
  Sex: Male

DRUGS (3)
  1. CERTOLIZUMAB PEGOL RA [Suspect]
     Active Substance: CERTOLIZUMAB PEGOL
     Dosage: 200 MG, EV 2 WEEKS(QOW)
     Route: 058
     Dates: start: 20110727, end: 20160602
  2. CERTOLIZUMAB PEGOL RA [Suspect]
     Active Substance: CERTOLIZUMAB PEGOL
     Dosage: 200 MG, MONTHLY (QM)
     Dates: start: 20160812, end: 201611
  3. CERTOLIZUMAB PEGOL RA [Suspect]
     Active Substance: CERTOLIZUMAB PEGOL
     Indication: RHEUMATOID ARTHRITIS
     Dosage: 400 MG, EV 2 WEEKS(QOW) X 3
     Route: 058
     Dates: start: 20110615, end: 20110713

REACTIONS (4)
  - Intentional product misuse [Unknown]
  - Neutropenia [Recovered/Resolved]
  - Leukopenia [Unknown]
  - Aortic valve disease [Not Recovered/Not Resolved]

NARRATIVE: CASE EVENT DATE: 2014
